FAERS Safety Report 4293134-6 (Version None)
Quarter: 2004Q1

REPORT INFORMATION
  Report Type: 
  Country: None (occurrence: None)
  Receive Date: 20040212
  Receipt Date: 20030527
  Transmission Date: 20041129
  Serious: No
  Sender: FDA-Public Use
  Company Number: US-GLAXOSMITHKLINE-A0409580A

PATIENT
  Age: 31 Year
  Sex: Female

DRUGS (1)
  1. PAXIL [Suspect]
     Route: 048
     Dates: start: 20030301

REACTIONS (4)
  - DIARRHOEA [None]
  - LIBIDO INCREASED [None]
  - NIGHT SWEATS [None]
  - TREMOR [None]
